FAERS Safety Report 9199336 (Version 1)
Quarter: 2013Q1

REPORT INFORMATION
  Report Type: Spontaneous
  Country: US (occurrence: US)
  Receive Date: 20130329
  Receipt Date: 20130329
  Transmission Date: 20140127
  Serious: No
  Sender: FDA-Public Use
  Company Number: US-009507513-1303USA013503

PATIENT
  Sex: Female

DRUGS (1)
  1. DR. SCHOLLS LIQUID CORN CALLUS REMOVER [Suspect]
     Indication: HYPERKERATOSIS
     Dosage: UNK, UNKNOWN
     Route: 061

REACTIONS (2)
  - Skin exfoliation [Unknown]
  - Drug ineffective [Unknown]
